FAERS Safety Report 19354013 (Version 3)
Quarter: 2021Q3

REPORT INFORMATION
  Report Type: Report from Study
  Country: GB (occurrence: GB)
  Receive Date: 20210531
  Receipt Date: 20210721
  Transmission Date: 20211014
  Serious: Yes (Other)
  Sender: FDA-Public Use
  Company Number: GB-TAKEDA-2021TUS033806

PATIENT
  Sex: Male

DRUGS (6)
  1. TACROLIMUS. [Concomitant]
     Active Substance: TACROLIMUS
     Dosage: UNK
  2. ASPIRIN. [Concomitant]
     Active Substance: ASPIRIN
     Dosage: UNK
  3. VEDOLIZUMAB [Suspect]
     Active Substance: VEDOLIZUMAB
     Indication: INFLAMMATORY BOWEL DISEASE
     Dosage: UNK
     Route: 042
     Dates: start: 20161117, end: 20180131
  4. URSODEOXYCHOLIC AC [Concomitant]
     Dosage: UNK
  5. MYCOPHENOLATE [Concomitant]
     Active Substance: MYCOPHENOLIC ACID
     Dosage: UNK
  6. WARFARIN [Concomitant]
     Active Substance: WARFARIN
     Dosage: UNK

REACTIONS (2)
  - Biliary sepsis [Recovered/Resolved]
  - Sleep apnoea syndrome [Not Recovered/Not Resolved]

NARRATIVE: CASE EVENT DATE: 20200422
